FAERS Safety Report 25106910 (Version 1)
Quarter: 2025Q1

REPORT INFORMATION
  Report Type: Spontaneous
  Country: ES (occurrence: ES)
  Receive Date: 20250321
  Receipt Date: 20250321
  Transmission Date: 20250409
  Serious: Yes (Other)
  Sender: DR REDDYS
  Company Number: ES-GERMAN-ESP/2025/03/004130

PATIENT
  Age: 3 Year
  Sex: Female

DRUGS (10)
  1. CYCLOPHOSPHAMIDE [Suspect]
     Active Substance: CYCLOPHOSPHAMIDE
     Indication: Sarcoma
  2. CYCLOPHOSPHAMIDE [Suspect]
     Active Substance: CYCLOPHOSPHAMIDE
  3. IFOSFAMIDE [Suspect]
     Active Substance: IFOSFAMIDE
     Indication: Sarcoma
  4. IFOSFAMIDE [Suspect]
     Active Substance: IFOSFAMIDE
  5. ETOPOSIDE [Suspect]
     Active Substance: ETOPOSIDE
     Indication: Sarcoma
  6. ETOPOSIDE [Suspect]
     Active Substance: ETOPOSIDE
  7. VINCRISTINE [Suspect]
     Active Substance: VINCRISTINE
     Indication: Sarcoma
  8. VINCRISTINE [Suspect]
     Active Substance: VINCRISTINE
  9. DOXORUBICIN [Suspect]
     Active Substance: DOXORUBICIN
     Indication: Sarcoma
  10. DOXORUBICIN [Suspect]
     Active Substance: DOXORUBICIN

REACTIONS (2)
  - Drug ineffective [Unknown]
  - Contraindicated product administered [Unknown]
